FAERS Safety Report 13497563 (Version 1)
Quarter: 2017Q2

REPORT INFORMATION
  Report Type: Spontaneous
  Country: AU (occurrence: AU)
  Receive Date: 20170428
  Receipt Date: 20170428
  Transmission Date: 20170830
  Serious: Yes (Other)
  Sender: FDA-Public Use
  Company Number: AU-ELI_LILLY_AND_COMPANY-AU201704010931

PATIENT
  Age: 22 Year
  Sex: Female

DRUGS (2)
  1. ZYPREXA ZYDIS [Suspect]
     Active Substance: OLANZAPINE
     Indication: PRODUCT USED FOR UNKNOWN INDICATION
     Dosage: UNK, UNKNOWN
     Route: 065
     Dates: start: 2009
  2. ZYPREXA ZYDIS [Suspect]
     Active Substance: OLANZAPINE
     Dosage: 2.5 MG, QD
     Route: 065
     Dates: end: 201704

REACTIONS (5)
  - Asthenia [Unknown]
  - Decreased appetite [Unknown]
  - Inappropriate schedule of drug administration [Unknown]
  - Depersonalisation/derealisation disorder [Unknown]
  - Nausea [Unknown]

NARRATIVE: CASE EVENT DATE: 201704
